FAERS Safety Report 15775591 (Version 1)
Quarter: 2018Q4

REPORT INFORMATION
  Report Type: Spontaneous
  Country: US (occurrence: US)
  Receive Date: 20181231
  Receipt Date: 20181231
  Transmission Date: 20190205
  Serious: Yes (Other)
  Sender: FDA-Public Use
  Company Number: US-MACLEODS PHARMACEUTICALS US LTD-MAC2018019433

PATIENT

DRUGS (1)
  1. OLANZAPINE. [Suspect]
     Active Substance: OLANZAPINE
     Indication: BIPOLAR DISORDER
     Dosage: 5 MILLIGRAM QD, ONE TIME IN THE NIGHT
     Route: 065
     Dates: start: 201810

REACTIONS (9)
  - Insomnia [Unknown]
  - Tardive dyskinesia [Unknown]
  - Weight increased [Unknown]
  - Agitation [Unknown]
  - Drug ineffective [Unknown]
  - Suicidal ideation [Unknown]
  - Product substitution issue [Unknown]
  - Pain [Unknown]
  - Eating disorder [Unknown]
